FAERS Safety Report 8803453 (Version 4)
Quarter: 2013Q1

REPORT INFORMATION
  Report Type: Report from Study
  Country: IT (occurrence: IT)
  Receive Date: 20120924
  Receipt Date: 20130322
  Transmission Date: 20140127
  Serious: Yes (Death, Life-Threatening, Hospitalization)
  Sender: FDA-Public Use
  Company Number: PHHO2012IT013564

PATIENT
  Age: 84 Year
  Sex: Female
  Weight: 50 kg

DRUGS (6)
  1. ALISKIREN [Suspect]
     Indication: CARDIAC FAILURE CHRONIC
     Dosage: UNK
     Route: 048
     Dates: start: 20110315, end: 20120518
  2. ALISKIREN [Suspect]
     Dosage: UNK
     Route: 048
     Dates: start: 20120519
  3. CARVEDILOL [Suspect]
     Indication: CARDIAC FAILURE CONGESTIVE
     Dosage: 3.25 MG, BID
     Route: 048
     Dates: start: 20070130, end: 20120518
  4. FUROSEMIDE [Suspect]
     Indication: CARDIAC FAILURE CONGESTIVE
     Dosage: 25 MG, QID
     Route: 048
     Dates: start: 20090826, end: 20120518
  5. DIGOXIN [Suspect]
     Indication: CARDIAC FAILURE CONGESTIVE
     Dosage: 0.125 MG, QD
     Route: 048
     Dates: start: 20070130, end: 20120518
  6. WARFARIN [Concomitant]
     Indication: VENTRICULAR DYSFUNCTION
     Dosage: ACCORDING TO INR VALUE.
     Dates: start: 20070130, end: 20120518

REACTIONS (5)
  - Death [Fatal]
  - Hypotension [Unknown]
  - Renal failure acute [Unknown]
  - Bradyarrhythmia [Unknown]
  - Disorientation [Unknown]
